FAERS Safety Report 17588036 (Version 1)
Quarter: 2020Q1

REPORT INFORMATION
  Report Type: Report from Study
  Country: None (occurrence: US)
  Receive Date: 20200327
  Receipt Date: 20200327
  Transmission Date: 20200409
  Serious: Yes (Hospitalization, Other)
  Sender: FDA-Public Use
  Company Number: US-ABBVIE-20K-163-3332328-00

PATIENT
  Sex: Female

DRUGS (3)
  1. SYNTHROID [Suspect]
     Active Substance: LEVOTHYROXINE SODIUM
     Indication: HYPERTHYROIDISM
     Route: 048
  2. SYNTHROID [Suspect]
     Active Substance: LEVOTHYROXINE SODIUM
     Indication: HYPOTHYROIDISM
     Route: 048
     Dates: start: 1996
  3. LEVOTHYROXINE. [Suspect]
     Active Substance: LEVOTHYROXINE
     Indication: PRODUCT USED FOR UNKNOWN INDICATION
     Route: 048

REACTIONS (17)
  - Oxygen saturation decreased [Recovered/Resolved]
  - Atrial fibrillation [Recovering/Resolving]
  - Neuropathy peripheral [Unknown]
  - Mobility decreased [Not Recovered/Not Resolved]
  - Balance disorder [Unknown]
  - Cardiac failure congestive [Recovered/Resolved]
  - Loss of personal independence in daily activities [Recovered/Resolved]
  - Fall [Recovered/Resolved]
  - Peripheral swelling [Not Recovered/Not Resolved]
  - Visual impairment [Not Recovered/Not Resolved]
  - Basedow^s disease [Unknown]
  - Cardiomegaly [Not Recovered/Not Resolved]
  - Alopecia [Recovering/Resolving]
  - Joint range of motion decreased [Recovered/Resolved]
  - Cardiac failure [Not Recovered/Not Resolved]
  - Epistaxis [Recovered/Resolved]
  - Diverticulitis [Not Recovered/Not Resolved]
